FAERS Safety Report 7373949-8 (Version None)
Quarter: 2011Q1

REPORT INFORMATION
  Report Type: 
  Country: None (occurrence: None)
  Receive Date: 20110325
  Receipt Date: 20110321
  Transmission Date: 20110831
  Serious: No
  Sender: FDA-Public Use
  Company Number: US-PFIZER INC-2011061982

PATIENT
  Sex: Female
  Weight: 31.746 kg

DRUGS (3)
  1. GENOTROPIN [Suspect]
     Indication: GROWTH HORMONE DEFICIENCY
     Dosage: UNK
     Dates: start: 20091001
  2. LEVOTHYROXINE [Concomitant]
     Indication: HYPOTHYROIDISM
     Dosage: 25 UG, 1X/DAY
  3. LUPRON [Concomitant]
     Indication: BODY HEIGHT ABNORMAL
     Dosage: 11.25 MG, EVERY 4 WEEK

REACTIONS (1)
  - DRUG INEFFECTIVE [None]
